FAERS Safety Report 13587922 (Version 1)
Quarter: 2017Q2

REPORT INFORMATION
  Report Type: Spontaneous
  Country: JP (occurrence: JP)
  Receive Date: 20170527
  Receipt Date: 20170527
  Transmission Date: 20170830
  Serious: Yes (Other)
  Sender: FDA-Public Use
  Company Number: JP-ACCORD-051699

PATIENT
  Age: 60 Year
  Sex: Male

DRUGS (2)
  1. CISPLATIN. [Suspect]
     Active Substance: CISPLATIN
     Indication: GALLBLADDER CANCER
  2. GEMCITABINE/GEMCITABINE HYDROCHLORIDE [Suspect]
     Active Substance: GEMCITABINE\GEMCITABINE HYDROCHLORIDE
     Indication: GALLBLADDER CANCER
     Dosage: ON DAY 1 AND 8, 3 WEEKS PER CYCLE

REACTIONS (5)
  - Malignant neoplasm progression [None]
  - Leukopenia [Unknown]
  - Malignant ascites [None]
  - Thrombocytopenia [Unknown]
  - Metastases to spine [None]
